FAERS Safety Report 10019473 (Version 2)
Quarter: 2014Q2

REPORT INFORMATION
  Report Type: Report from Study
  Country: JP (occurrence: JP)
  Receive Date: 20140318
  Receipt Date: 20140401
  Transmission Date: 20141212
  Serious: Yes (Death)
  Sender: FDA-Public Use
  Company Number: JP-PFIZER INC-2014073641

PATIENT
  Age: 63 Year
  Sex: Female
  Weight: 55.8 kg

DRUGS (17)
  1. SILDENAFIL CITRATE [Suspect]
     Dosage: 20 MG, 3X/DAY
     Route: 048
     Dates: start: 20081202
  2. DEPAKENE [Concomitant]
     Dosage: UNK
     Route: 048
  3. LEXOTAN [Concomitant]
     Dosage: UNK
     Route: 048
  4. DESYREL [Concomitant]
     Dosage: UNK
     Route: 048
  5. HIRNAMIN [Concomitant]
     Dosage: UNK
     Route: 048
  6. TEGRETOL [Concomitant]
     Dosage: UNK
     Route: 048
  7. BENZALIN [Concomitant]
     Dosage: UNK
     Route: 048
  8. ROHIPNOL [Concomitant]
     Dosage: UNK
     Route: 048
  9. RISPERDAL [Concomitant]
     Dosage: UNK
     Route: 048
     Dates: start: 20100820
  10. JZOLOFT [Concomitant]
     Dosage: UNK
     Route: 048
     Dates: start: 20100622
  11. TRACLEER [Concomitant]
     Indication: PULMONARY HYPERTENSION
     Dosage: UNK
     Route: 048
  12. CARELOAD [Concomitant]
     Indication: PULMONARY HYPERTENSION
     Dosage: UNK
     Route: 048
  13. LASIX [Concomitant]
     Indication: PULMONARY HYPERTENSION
     Dosage: UNK
     Route: 048
  14. BAYASPIRIN [Concomitant]
     Dosage: UNK
     Route: 048
  15. PARIET [Concomitant]
     Dosage: UNK
     Route: 048
  16. PREDONINE [Concomitant]
     Dosage: UNK
     Route: 048
  17. ZYLORIC ^FAES^ [Concomitant]
     Dosage: UNK
     Route: 048
     Dates: start: 20090503

REACTIONS (1)
  - Death [Fatal]
